FAERS Safety Report 5217035-1 (Version None)
Quarter: 2007Q1

REPORT INFORMATION
  Report Type: 
  Country: None (occurrence: None)
  Receive Date: 20070124
  Receipt Date: 20070116
  Transmission Date: 20070707
  Serious: Yes (Death, Other)
  Sender: FDA-Public Use
  Company Number: US-AVENTIS-200710398US

PATIENT
  Sex: Female

DRUGS (2)
  1. LOVENOX [Suspect]
  2. UNKNOWN DRUG [Concomitant]

REACTIONS (1)
  - NEOPLASM PROGRESSION [None]
